FAERS Safety Report 11680558 (Version 3)
Quarter: 2015Q4

REPORT INFORMATION
  Report Type: Spontaneous
  Country: US (occurrence: US)
  Receive Date: 20151027
  Receipt Date: 20151110
  Transmission Date: 20160304
  Serious: No
  Sender: FDA-Public Use
  Company Number: US-ELI_LILLY_AND_COMPANY-US201010006786

PATIENT
  Age: 42 Year
  Sex: Male

DRUGS (7)
  1. FORTEO [Suspect]
     Active Substance: TERIPARATIDE
     Dosage: 20 UG, QD
  2. PREDNISONE. [Concomitant]
     Active Substance: PREDNISONE
     Indication: CROHN^S DISEASE
  3. FORTEO [Suspect]
     Active Substance: TERIPARATIDE
     Indication: OSTEOPOROSIS
     Dosage: 20 UG, DAILY (1/D)
     Dates: start: 20101004
  4. HUMIRA [Concomitant]
     Active Substance: ADALIMUMAB
     Indication: CROHN^S DISEASE
     Dates: start: 1995
  5. FORTEO [Suspect]
     Active Substance: TERIPARATIDE
     Dosage: 20 UG, DAILY (1/D)
  6. FORTEO [Suspect]
     Active Substance: TERIPARATIDE
     Dosage: 20 UG, QD
  7. FORTEO [Suspect]
     Active Substance: TERIPARATIDE
     Dosage: 20 UG, DAILY (1/D)

REACTIONS (12)
  - Nasopharyngitis [Not Recovered/Not Resolved]
  - Rhinorrhoea [Unknown]
  - Fatigue [Recovered/Resolved]
  - Malaise [Not Recovered/Not Resolved]
  - Drug dose omission [Recovered/Resolved]
  - Back pain [Unknown]
  - Asthenia [Unknown]
  - Nasal congestion [Unknown]
  - Injection site bruising [Unknown]
  - Skin papilloma [Recovering/Resolving]
  - Malaise [Unknown]
  - Arthralgia [Unknown]

NARRATIVE: CASE EVENT DATE: 201010
